FAERS Safety Report 26205331 (Version 1)
Quarter: 2025Q4

REPORT INFORMATION
  Report Type: Spontaneous
  Country: US (occurrence: US)
  Receive Date: 20251228
  Receipt Date: 20251228
  Transmission Date: 20260118
  Serious: Yes (Other)
  Sender: DR REDDYS
  Company Number: US-DRL-USA-USA/2025/12/019628

PATIENT
  Age: 45 Year
  Sex: Female

DRUGS (8)
  1. CYCLOPHOSPHAMIDE [Suspect]
     Active Substance: CYCLOPHOSPHAMIDE
     Indication: Invasive ductal breast carcinoma
  2. CYCLOPHOSPHAMIDE [Suspect]
     Active Substance: CYCLOPHOSPHAMIDE
     Indication: Metastases to lymph nodes
  3. DOXORUBICIN [Suspect]
     Active Substance: DOXORUBICIN
     Indication: Invasive ductal breast carcinoma
  4. DOXORUBICIN [Suspect]
     Active Substance: DOXORUBICIN
     Indication: Metastases to lymph nodes
  5. PACLITAXEL [Suspect]
     Active Substance: PACLITAXEL
     Indication: Metastases to lymph nodes
  6. PACLITAXEL [Suspect]
     Active Substance: PACLITAXEL
     Indication: Invasive ductal breast carcinoma
  7. DEXRAZOXANE [Concomitant]
     Active Substance: DEXRAZOXANE
     Indication: Metastases to lymph nodes
  8. DEXRAZOXANE [Concomitant]
     Active Substance: DEXRAZOXANE
     Indication: Invasive ductal breast carcinoma

REACTIONS (4)
  - Ejection fraction decreased [Recovering/Resolving]
  - Cardiac failure [Recovering/Resolving]
  - Anaemia [Unknown]
  - Product use in unapproved indication [Unknown]
